FAERS Safety Report 8551618-6 (Version None)
Quarter: 2012Q3

REPORT INFORMATION
  Report Type: 
  Country: None (occurrence: None)
  Receive Date: 20120730
  Receipt Date: 20120725
  Transmission Date: 20120928
  Serious: Yes (Other)
  Sender: FDA-Public Use
  Company Number: VE-PFIZER INC-2012173752

PATIENT
  Age: 33 Year
  Sex: Female

DRUGS (2)
  1. LYRICA [Suspect]
     Indication: MUSCULOSKELETAL DISCOMFORT
     Dosage: 75 MG, 1X/DAY
     Route: 048
     Dates: start: 20120301
  2. ALPRAZOLAM [Concomitant]
     Indication: DEPRESSION
     Dosage: 0.5 MG, 1X/DAY
     Route: 048
     Dates: start: 20110701

REACTIONS (2)
  - FALL [None]
  - FOOT FRACTURE [None]
